FAERS Safety Report 9704702 (Version 5)
Quarter: 2014Q2

REPORT INFORMATION
  Report Type: Spontaneous
  Country: JP (occurrence: JP)
  Receive Date: 20131122
  Receipt Date: 20140527
  Transmission Date: 20141212
  Serious: Yes (Disabling)
  Sender: FDA-Public Use
  Company Number: JP-JNJFOC-20131109498

PATIENT
  Age: 66 Year
  Sex: Male
  Weight: 44 kg

DRUGS (7)
  1. DOXORUBICIN HYDROCHLORIDE (DOXIL) [Suspect]
     Indication: CASTLEMAN^S DISEASE
     Route: 042
     Dates: start: 20121022, end: 20130213
  2. ANTI-VIRUS MEDICATION [Concomitant]
     Indication: CASTLEMAN^S DISEASE
     Route: 065
  3. VALGANCICLOVIR HYDROCHLORIDE [Concomitant]
     Indication: CASTLEMAN^S DISEASE
     Route: 048
     Dates: start: 201305
  4. EPZICOM [Concomitant]
     Indication: HIV INFECTION
     Route: 048
     Dates: start: 20110517
  5. RALTEGRAVIR POTASSIUM [Concomitant]
     Indication: HIV INFECTION
     Route: 048
     Dates: start: 20110517
  6. SAMTIREL [Concomitant]
     Indication: HIV INFECTION
     Route: 048
     Dates: start: 20110419, end: 20130905
  7. GRANISETRON HYDROCHLORIDE [Concomitant]
     Indication: CASTLEMAN^S DISEASE
     Route: 042
     Dates: start: 20121022, end: 20130213

REACTIONS (2)
  - Interstitial lung disease [Not Recovered/Not Resolved]
  - Off label use [Unknown]
